FAERS Safety Report 6354746-9 (Version None)
Quarter: 2009Q3

REPORT INFORMATION
  Report Type: 
  Country: None (occurrence: None)
  Receive Date: 20090909
  Receipt Date: 20090824
  Transmission Date: 20100115
  Serious: Yes (Death, Hospitalization)
  Sender: FDA-Public Use
  Company Number: 2008AL011044

PATIENT
  Age: 79 Year
  Sex: Female

DRUGS (35)
  1. DIGOXIN [Suspect]
     Dosage: 0.25MG, PO
     Route: 048
     Dates: start: 20020101, end: 20080101
  2. ENALAPRIL MALEATE [Concomitant]
  3. FUROSEMIDE [Concomitant]
  4. PREDNISONE [Concomitant]
  5. WARFARIN SODIUM [Concomitant]
  6. OXYBUTYNIN CHLORIDE [Concomitant]
  7. PROMETHAZINE [Concomitant]
  8. METOPROLOL TARTRATE [Concomitant]
  9. HYDROXYZ HCL [Concomitant]
  10. LISINOPRIL [Concomitant]
  11. LEVOTHYROXINE SODIUM [Concomitant]
  12. METFORMIN HCL [Concomitant]
  13. KLOR-CON [Concomitant]
  14. DETROL LA [Concomitant]
  15. DIPHEN/ATROP [Concomitant]
  16. ALBUTEROL [Concomitant]
  17. ATROVENT [Concomitant]
  18. EFFEXOR [Concomitant]
  19. LEVOXYL [Concomitant]
  20. PROTONIX [Concomitant]
  21. ALLOPURINOL [Concomitant]
  22. ALENDRONATE SODIUM [Concomitant]
  23. CALCIUM [Concomitant]
  24. VENLAFAXINE HCL [Concomitant]
  25. MORPHINE [Concomitant]
  26. ACETAMIN-OXYCODONE [Concomitant]
  27. ACETAMINOPHEN [Concomitant]
  28. DOCUSATE SODIUM [Concomitant]
  29. PANTOPRAZOLE SODIUM [Concomitant]
  30. HEPARIN [Concomitant]
  31. IRON POLYSACCHARIDE [Concomitant]
  32. CARMEX [Concomitant]
  33. SODIUM POLYSTYRENE [Concomitant]
  34. INSULIN [Concomitant]
  35. GLUCAGON [Concomitant]

REACTIONS (19)
  - AORTIC CALCIFICATION [None]
  - ATRIAL FIBRILLATION [None]
  - AZOTAEMIA [None]
  - BRADYCARDIA [None]
  - CARDIAC FAILURE CONGESTIVE [None]
  - CARDIOMEGALY [None]
  - DIARRHOEA [None]
  - DIZZINESS [None]
  - HEADACHE [None]
  - HYPERKALAEMIA [None]
  - HYPERTENSION [None]
  - HYPOKALAEMIA [None]
  - HYPOMAGNESAEMIA [None]
  - INJURY [None]
  - OEDEMA PERIPHERAL [None]
  - PAIN [None]
  - SMALL INTESTINAL OBSTRUCTION [None]
  - THERAPEUTIC AGENT TOXICITY [None]
  - URINARY TRACT INFECTION [None]
